APPROVED DRUG PRODUCT: ADAPALENE
Active Ingredient: ADAPALENE
Strength: 0.1%
Dosage Form/Route: CREAM;TOPICAL
Application: A090824 | Product #001 | TE Code: AB
Applicant: FOUGERA PHARMACEUTICALS INC
Approved: Jun 30, 2010 | RLD: No | RS: No | Type: RX